FAERS Safety Report 5888486-7 (Version None)
Quarter: 2008Q3

REPORT INFORMATION
  Report Type: 
  Country: None (occurrence: None)
  Receive Date: 20080918
  Receipt Date: 20080911
  Transmission Date: 20090109
  Serious: Yes (Death)
  Sender: FDA-Public Use
  Company Number: IT-BAYER-200826193GPV

PATIENT
  Age: 79 Year
  Sex: Female

DRUGS (2)
  1. ULTRAVIST 370 [Suspect]
     Indication: DRUG USE FOR UNKNOWN INDICATION
     Route: 042
     Dates: start: 20080905, end: 20080905
  2. OXYGEN THERAPY [Concomitant]

REACTIONS (1)
  - BUNDLE BRANCH BLOCK LEFT [None]
